FAERS Safety Report 10345844 (Version 1)
Quarter: 2014Q3

REPORT INFORMATION
  Report Type: Spontaneous
  Country: SI (occurrence: SI)
  Receive Date: 20140728
  Receipt Date: 20140728
  Transmission Date: 20150326
  Serious: Yes (Hospitalization)
  Sender: FDA-Public Use
  Company Number: PHHY2014SI089180

PATIENT
  Age: 66 Year
  Sex: Male

DRUGS (9)
  1. ANALGIN [Concomitant]
     Active Substance: METAMIZOLE SODIUM
  2. ERBITUX [Suspect]
     Active Substance: CETUXIMAB
     Indication: COLORECTAL CANCER METASTATIC
     Dosage: 400 MG, UNK
     Route: 042
     Dates: start: 20140606
  3. RECONVAL K1 [Concomitant]
     Route: 003
  4. TORECAN [Concomitant]
     Active Substance: THIETHYLPERAZINE MALATE
  5. KLIMICIN V [Suspect]
     Active Substance: CLINDAMYCIN PHOSPHATE
     Dosage: 150 MG, QD
     Route: 048
     Dates: start: 20140613
  6. NOLPAZA [Concomitant]
     Active Substance: PANTOPRAZOLE SODIUM
  7. ELOCOM [Concomitant]
     Active Substance: MOMETASONE FUROATE
     Route: 003
  8. KLIMICIN [Concomitant]
     Active Substance: CLINDAMYCIN PHOSPHATE
  9. CLARITIN [Concomitant]
     Active Substance: LORATADINE

REACTIONS (2)
  - Dermatitis acneiform [Recovered/Resolved]
  - Rash maculo-papular [Recovered/Resolved]

NARRATIVE: CASE EVENT DATE: 20140610
